FAERS Safety Report 8922889 (Version 2)
Quarter: 2014Q2

REPORT INFORMATION
  Report Type: Spontaneous
  Country: GB (occurrence: GB)
  Receive Date: 20121123
  Receipt Date: 20131018
  Transmission Date: 20141212
  Serious: Yes (Hospitalization, Other)
  Sender: FDA-Public Use
  Company Number: GB-PFIZER INC-2012289311

PATIENT
  Age: 62 Year
  Sex: Male

DRUGS (4)
  1. CYTARABINE [Suspect]
     Indication: ACUTE LEUKAEMIA
     Dosage: FLAG/IDA COURSE 2
     Dates: start: 20111202
  2. IDARUBICIN HCL [Suspect]
     Indication: ACUTE LEUKAEMIA
     Dosage: FLAG/IDA COURSE 2
     Dates: start: 20111202
  3. FLUDARA [Suspect]
     Indication: ACUTE LEUKAEMIA
     Dosage: FLAG/IDA COURSE 2
     Dates: start: 20111202
  4. GRANULOCYTE COLONY-STIMULATING FACTOR NOS [Suspect]
     Indication: ACUTE LEUKAEMIA
     Dosage: FLAG/IDA COURSE 2
     Dates: start: 20111202

REACTIONS (2)
  - Neutropenic sepsis [Recovered/Resolved]
  - Fungal infection [Recovered/Resolved]
